FAERS Safety Report 6136145-8 (Version None)
Quarter: 2009Q1

REPORT INFORMATION
  Report Type: 
  Country: None (occurrence: None)
  Receive Date: 20090325
  Receipt Date: 20090308
  Transmission Date: 20090719
  Serious: Yes (Other)
  Sender: FDA-Public Use
  Company Number: 2007S1006318

PATIENT
  Age: 61 Year
  Sex: Male
  Weight: 77.1115 kg

DRUGS (6)
  1. PHOSPHOSOADA FLAVOR NOT SPECIFIED [Suspect]
     Indication: COLONOSCOPY
     Dosage: 90 ML; TOTAL; PO
     Route: 048
     Dates: start: 20061019, end: 20061019
  2. INDERAL/00030001/ [Concomitant]
  3. LISINOPRIL [Concomitant]
  4. LIPITOR [Concomitant]
  5. DULCOLAX/00064401/ [Concomitant]
  6. SODIUM PHOSPHATE [Concomitant]

REACTIONS (5)
  - DIALYSIS [None]
  - HYPERPHOSPHATAEMIA [None]
  - INJURY [None]
  - RENAL FAILURE ACUTE [None]
  - RENAL FAILURE CHRONIC [None]
